FAERS Safety Report 8555127-X (Version None)
Quarter: 2012Q3

REPORT INFORMATION
  Report Type: 
  Country: None (occurrence: None)
  Receive Date: 20120731
  Receipt Date: 20120723
  Transmission Date: 20120928
  Serious: Yes (Other)
  Sender: FDA-Public Use
  Company Number: US-009507513-1207USA010504

PATIENT

DRUGS (3)
  1. ZOCOR [Suspect]
  2. MULTAQ [Suspect]
     Route: 048
  3. PRAVASTATIN SODIUM [Suspect]

REACTIONS (3)
  - STENT PLACEMENT [None]
  - MALAISE [None]
  - MYALGIA [None]
